FAERS Safety Report 15126579 (Version 1)
Quarter: 2018Q3

REPORT INFORMATION
  Report Type: Spontaneous
  Country: GB (occurrence: GB)
  Receive Date: 20180710
  Receipt Date: 20180710
  Transmission Date: 20181010
  Serious: Yes (Hospitalization)
  Sender: FDA-Public Use
  Company Number: GB-MYLANLABS-2018M1048763

PATIENT
  Age: 29 Year
  Sex: Female

DRUGS (3)
  1. RIFAMPICIN [Suspect]
     Active Substance: RIFAMPIN
     Indication: DISSEMINATED TUBERCULOSIS
     Dosage: UNK
     Route: 065
  2. ISONIAZID. [Suspect]
     Active Substance: ISONIAZID
     Indication: DISSEMINATED TUBERCULOSIS
     Dosage: UNK
     Route: 065
  3. PYRAZINAMIDE. [Suspect]
     Active Substance: PYRAZINAMIDE
     Indication: DISSEMINATED TUBERCULOSIS
     Dosage: UNK
     Route: 065

REACTIONS (21)
  - Platelet count decreased [Not Recovered/Not Resolved]
  - Aspartate aminotransferase increased [Recovered/Resolved]
  - Pyrexia [Recovered/Resolved]
  - Granulomatous liver disease [Recovered/Resolved]
  - Liver palpable [Recovered/Resolved]
  - Blood alkaline phosphatase increased [Recovered/Resolved]
  - Disseminated tuberculosis [Recovering/Resolving]
  - International normalised ratio increased [Recovered/Resolved]
  - Spleen palpable [Recovered/Resolved]
  - Haemoglobin decreased [Recovered/Resolved]
  - Condition aggravated [Recovered/Resolved]
  - Jaundice [Recovered/Resolved]
  - Drug ineffective [Unknown]
  - White blood cell count decreased [Not Recovered/Not Resolved]
  - Blood urea decreased [Recovered/Resolved]
  - Cholestasis [Recovered/Resolved]
  - Pancytopenia [Not Recovered/Not Resolved]
  - Hyponatraemia [Recovered/Resolved]
  - Gamma-glutamyltransferase increased [Recovered/Resolved]
  - Hepatosplenomegaly [Recovered/Resolved]
  - Confusional state [Recovered/Resolved]
